FAERS Safety Report 8521261-3 (Version None)
Quarter: 2012Q3

REPORT INFORMATION
  Report Type: 
  Country: None (occurrence: None)
  Receive Date: 20120719
  Receipt Date: 20120626
  Transmission Date: 20120928
  Serious: Yes (Other)
  Sender: FDA-Public Use
  Company Number: US-ROCHE-1081978

PATIENT
  Sex: Male

DRUGS (4)
  1. ROCEPHIN [Suspect]
     Indication: PRODUCT USED FOR UNKNOWN INDICATION
  2. LIPITOR [Concomitant]
     Route: 048
  3. TOPROL-XL [Concomitant]
  4. ATACAND [Concomitant]

REACTIONS (1)
  - HIP SURGERY [None]
